FAERS Safety Report 6402090-3 (Version None)
Quarter: 2009Q4

REPORT INFORMATION
  Report Type: 
  Country: None (occurrence: None)
  Receive Date: 20091015
  Receipt Date: 20091009
  Transmission Date: 20100525
  Serious: Yes (Life-Threatening, Hospitalization, Other)
  Sender: FDA-Public Use
  Company Number: US-ASTRAZENECA-2009SE07751

PATIENT
  Age: 13778 Day
  Sex: Female

DRUGS (6)
  1. SEROQUEL XR [Suspect]
     Indication: BIPOLAR DISORDER
     Route: 048
  2. EPICAC [Concomitant]
  3. EFFEXOR XR [Concomitant]
     Indication: DEPRESSION
     Route: 048
  4. TOPAMAX [Concomitant]
     Route: 048
  5. ABILITY [Concomitant]
     Route: 048
  6. ROZEREN [Concomitant]
     Indication: SLEEP DISORDER
     Route: 048

REACTIONS (2)
  - OVERDOSE [None]
  - RESUSCITATION [None]
